FAERS Safety Report 6323148-3 (Version None)
Quarter: 2009Q3

REPORT INFORMATION
  Report Type: 
  Country: None (occurrence: None)
  Receive Date: 20090824
  Receipt Date: 20090812
  Transmission Date: 20100115
  Serious: Yes (Life-Threatening)
  Sender: FDA-Public Use
  Company Number: FR-PFIZER INC-2009231869

PATIENT
  Age: 80 Year

DRUGS (3)
  1. ALDACTONE [Suspect]
     Indication: HYPERTENSION
     Dosage: 25 MG, 1X/DAY
     Route: 048
     Dates: end: 20080523
  2. COVERSYL [Suspect]
     Indication: HYPERTENSION
     Dosage: 4 MG, 1X/DAY
     Route: 048
  3. LERCAN [Concomitant]
     Indication: HYPERTENSION

REACTIONS (4)
  - BRADYCARDIA [None]
  - CARDIAC FAILURE ACUTE [None]
  - HYPERKALAEMIA [None]
  - RENAL FAILURE ACUTE [None]
